FAERS Safety Report 6049472-X (Version None)
Quarter: 2009Q1

REPORT INFORMATION
  Report Type: 
  Country: None (occurrence: None)
  Receive Date: 20090121
  Receipt Date: 20090109
  Transmission Date: 20090719
  Serious: Yes (Death, Life-Threatening, Hospitalization, Disabling)
  Sender: FDA-Public Use
  Company Number: A0542001A

PATIENT
  Age: 56 Year
  Sex: Female
  Weight: 126.5 kg

DRUGS (8)
  1. LAPATINIB TABLET (LAPATINIB) [Suspect]
     Indication: BREAST CANCER METASTATIC
     Dosage: 1500 MG / PER DAY / ORAL
     Route: 048
     Dates: start: 20050115, end: 20050119
  2. PACLITAXEL [Suspect]
     Indication: BREAST CANCER METASTATIC
     Dosage: 175 MG/M2/CYCYCLIC / INTRAVENOUS
     Route: 042
     Dates: start: 20050114, end: 20050114
  3. INSULIN [Concomitant]
  4. NON-GSK PROPRANOLOL HCL [Concomitant]
  5. ACETAMINOPHEN W/ CODEINE [Concomitant]
  6. DEXAMETHASONE [Concomitant]
  7. DIPHENHYDRAMINE HCL [Concomitant]
  8. RANITIDINE HYDROCHLORIDE [Concomitant]

REACTIONS (5)
  - CEREBROVASCULAR ACCIDENT [None]
  - CEREBROVASCULAR DISORDER [None]
  - COMA [None]
  - METASTASES TO CENTRAL NERVOUS SYSTEM [None]
  - STUPOR [None]
